FAERS Safety Report 8297577-5 (Version None)
Quarter: 2012Q2

REPORT INFORMATION
  Report Type: 
  Country: None (occurrence: None)
  Receive Date: 20120419
  Receipt Date: 20120410
  Transmission Date: 20120825
  Serious: Yes (Death)
  Sender: FDA-Public Use
  Company Number: JP-JNJFOC-20120405503

PATIENT
  Age: 84 Year
  Sex: Female
  Weight: 45 kg

DRUGS (12)
  1. SIMPONI [Suspect]
     Indication: RHEUMATOID ARTHRITIS
     Route: 058
     Dates: start: 20120307, end: 20120326
  2. CELEBREX [Concomitant]
     Indication: RHEUMATOID ARTHRITIS
     Route: 048
     Dates: end: 20120403
  3. NESINA [Concomitant]
     Route: 048
  4. ADALAT CC [Concomitant]
     Route: 048
  5. OLMESARTAN MEDOXOMIL [Concomitant]
     Route: 048
  6. LENDORMIN [Concomitant]
     Route: 048
  7. ALDOMET [Concomitant]
     Route: 048
  8. LASIX [Concomitant]
     Route: 048
  9. TALION [Concomitant]
     Route: 048
  10. TENORMIN [Concomitant]
     Route: 048
  11. LANSOPRAZOLE [Concomitant]
     Route: 048
  12. ASPIRIN [Concomitant]
     Route: 048

REACTIONS (1)
  - LEUKAEMIA [None]
